FAERS Safety Report 15738673 (Version 3)
Quarter: 2019Q3

REPORT INFORMATION
  Report Type: Spontaneous
  Country: JP (occurrence: JP)
  Receive Date: 20181219
  Receipt Date: 20190829
  Transmission Date: 20191004
  Serious: Yes (Hospitalization, Other)
  Sender: FDA-Public Use
  Company Number: JP-ELI_LILLY_AND_COMPANY-JP201807000130

PATIENT
  Sex: Male
  Weight: 57 kg

DRUGS (3)
  1. OFEV [Suspect]
     Active Substance: NINTEDANIB
     Indication: IDIOPATHIC PULMONARY FIBROSIS
     Dosage: 200 MG, DAILY
     Route: 065
     Dates: start: 20180613, end: 20180622
  2. CYRAMZA [Suspect]
     Active Substance: RAMUCIRUMAB
     Indication: LUNG ADENOCARCINOMA
     Dosage: UNK
     Route: 041
     Dates: start: 201805
  3. DOCETAXEL. [Suspect]
     Active Substance: DOCETAXEL
     Indication: LUNG ADENOCARCINOMA
     Dosage: UNK
     Route: 065
     Dates: start: 201805

REACTIONS (5)
  - Malignant neoplasm progression [Unknown]
  - Idiopathic pulmonary fibrosis [Recovering/Resolving]
  - Anaemia [Unknown]
  - Pneumonia [Unknown]
  - Gastric perforation [Recovering/Resolving]

NARRATIVE: CASE EVENT DATE: 2018
